FAERS Safety Report 7729486-1 (Version None)
Quarter: 2011Q3

REPORT INFORMATION
  Report Type: 
  Country: None (occurrence: None)
  Receive Date: 20110906
  Receipt Date: 20110824
  Transmission Date: 20111222
  Serious: Yes (Hospitalization)
  Sender: FDA-Public Use
  Company Number: DE-JNJFOC-20110810687

PATIENT
  Age: 53 Year
  Sex: Male

DRUGS (6)
  1. PALIPERIDONE [Suspect]
     Route: 030
     Dates: start: 20110802, end: 20110802
  2. CIATYL [Interacting]
     Indication: AGGRESSION
     Route: 065
     Dates: start: 20110816
  3. CLOZAPINE [Interacting]
     Indication: PRODUCT USED FOR UNKNOWN INDICATION
     Route: 065
  4. RISPERDAL [Suspect]
     Route: 048
  5. RISPERDAL [Suspect]
     Indication: AGGRESSION
     Route: 048
     Dates: start: 20110814
  6. PALIPERIDONE [Suspect]
     Indication: PRODUCT USED FOR UNKNOWN INDICATION
     Route: 030
     Dates: start: 20110810

REACTIONS (2)
  - DRUG INTERACTION [None]
  - INAPPROPRIATE ANTIDIURETIC HORMONE SECRETION [None]
